FAERS Safety Report 24790046 (Version 1)
Quarter: 2024Q4

REPORT INFORMATION
  Report Type: Spontaneous
  Country: JP (occurrence: JP)
  Receive Date: 20241230
  Receipt Date: 20241230
  Transmission Date: 20250114
  Serious: Yes (Hospitalization)
  Sender: DAIICHI
  Company Number: JP-DSJP-DS-2024-115243-JP

PATIENT
  Age: 89 Year
  Sex: Male

DRUGS (2)
  1. EDOXABAN TOSYLATE [Suspect]
     Active Substance: EDOXABAN TOSYLATE
     Indication: Product used for unknown indication
     Dosage: 30 MG
     Route: 048
  2. EDOXABAN TOSYLATE [Suspect]
     Active Substance: EDOXABAN TOSYLATE
     Dosage: 30 MG
     Route: 048

REACTIONS (5)
  - Fall [Unknown]
  - Traumatic haemorrhage [Recovered/Resolved]
  - Blood loss anaemia [Recovered/Resolved]
  - Cardiac failure [Unknown]
  - Haemorrhage subcutaneous [Unknown]
